FAERS Safety Report 12221407 (Version 3)
Quarter: 2016Q2

REPORT INFORMATION
  Report Type: Spontaneous
  Country: US (occurrence: US)
  Receive Date: 20160330
  Receipt Date: 20160415
  Transmission Date: 20160815
  Serious: Yes (Other)
  Sender: FDA-Public Use
  Company Number: US-GLAXOSMITHKLINE-US2016GSK040285

PATIENT
  Sex: Male

DRUGS (5)
  1. LAMICTAL [Suspect]
     Active Substance: LAMOTRIGINE
     Dosage: 300 MG, QD
     Dates: start: 2000, end: 201206
  2. LAMICTAL [Suspect]
     Active Substance: LAMOTRIGINE
     Indication: SEIZURE
     Dosage: 100 MG, QD
     Dates: start: 2000, end: 201206
  3. LAMICTAL [Suspect]
     Active Substance: LAMOTRIGINE
     Dosage: 75 MG, U
     Dates: start: 20160412
  4. LAMICTAL [Suspect]
     Active Substance: LAMOTRIGINE
     Dosage: 50 MG, U
  5. LAMICTAL [Suspect]
     Active Substance: LAMOTRIGINE
     Dosage: 25 MG, UNK
     Dates: start: 20160329

REACTIONS (8)
  - Drug ineffective [Unknown]
  - Stress [Unknown]
  - Skin fissures [Unknown]
  - Cerebral disorder [Unknown]
  - Dysgeusia [Recovered/Resolved]
  - Stevens-Johnson syndrome [Unknown]
  - Insomnia [Recovered/Resolved]
  - Circadian rhythm sleep disorder [Unknown]
